FAERS Safety Report 23238015 (Version 1)
Quarter: 2023Q4

REPORT INFORMATION
  Report Type: Report from Study
  Country: MX (occurrence: MX)
  Receive Date: 20231129
  Receipt Date: 20231129
  Transmission Date: 20240110
  Serious: Yes (Hospitalization, Other)
  Sender: FDA-Public Use
  Company Number: MX-ABBVIE-5516659

PATIENT
  Sex: Female
  Weight: 53 kg

DRUGS (2)
  1. VENCLEXTA [Suspect]
     Active Substance: VENETOCLAX
     Indication: Chronic lymphocytic leukaemia
     Dosage: FORM STRENGTH: 100MILLIGRAM
     Route: 048
     Dates: start: 20230824, end: 202311
  2. VENCLEXTA [Suspect]
     Active Substance: VENETOCLAX
     Indication: Chronic lymphocytic leukaemia
     Dosage: FORM STRENGTH: 100MILLIGRAM
     Route: 048
     Dates: start: 202311

REACTIONS (4)
  - Large intestinal haemorrhage [Unknown]
  - Weight decreased [Not Recovered/Not Resolved]
  - Ulcer [Unknown]
  - Rectal haemorrhage [Recovered/Resolved]

NARRATIVE: CASE EVENT DATE: 20230101
